FAERS Safety Report 7138593-6 (Version None)
Quarter: 2010Q4

REPORT INFORMATION
  Report Type: 
  Country: None (occurrence: None)
  Receive Date: 20101206
  Receipt Date: 20101126
  Transmission Date: 20110411
  Serious: Yes (Hospitalization, Other)
  Sender: FDA-Public Use
  Company Number: FR-PFIZER INC-2010164051

PATIENT
  Age: 23 Year
  Sex: Male

DRUGS (8)
  1. ATARAX [Suspect]
     Indication: AGGRESSION
     Dosage: 100 MG, 1X/DAY
     Route: 048
     Dates: end: 20101111
  2. RISPERDAL [Suspect]
     Indication: AGGRESSION
     Dosage: 6 MG, UNK
     Route: 048
     Dates: end: 20101111
  3. VALIUM [Suspect]
     Indication: AGGRESSION
     Dosage: 30 GTT, UNK
     Route: 048
     Dates: end: 20101111
  4. TOPIRAMATE [Concomitant]
     Dosage: 75 MG, 25MG IN AM, 50 MG IN PM
  5. ANDROCUR [Concomitant]
     Dosage: 50 MG, 1X/DAY
  6. LARGACTIL [Concomitant]
     Indication: AGITATION
     Dosage: 200 MG, AT NIGHT IF NEEDED
     Route: 030
  7. THERALENE [Concomitant]
     Indication: INSOMNIA
     Dosage: 40 GTT, AS NEEDED
     Route: 048
  8. DAFALGAN [Concomitant]
     Indication: PAIN
     Dosage: 1 G, 3X/DAY, IF PAIN

REACTIONS (9)
  - AGGRESSION [None]
  - BACK PAIN [None]
  - BLOOD CREATINE PHOSPHOKINASE INCREASED [None]
  - COMMUNICATION DISORDER [None]
  - CYTOLYTIC HEPATITIS [None]
  - MUSCLE RIGIDITY [None]
  - PYREXIA [None]
  - SOMNOLENCE [None]
  - WHITE BLOOD CELL COUNT INCREASED [None]
